FAERS Safety Report 9849941 (Version 1)
Quarter: 2014Q1

REPORT INFORMATION
  Report Type: Report from Study
  Country: US (occurrence: US)
  Receive Date: 20140128
  Receipt Date: 20140128
  Transmission Date: 20141002
  Serious: Yes (Hospitalization)
  Sender: FDA-Public Use
  Company Number: US-ABBVIE-14P-163-1192516-00

PATIENT
  Age: 40 Year
  Sex: Female

DRUGS (12)
  1. HUMIRA [Suspect]
     Indication: PSORIATIC ARTHROPATHY
     Dates: start: 20130315, end: 201305
  2. LANTUS [Concomitant]
     Indication: DIABETES MELLITUS
  3. NOVOLOG [Concomitant]
     Indication: DIABETES MELLITUS
     Dosage: SLIDING SCALE
  4. LISINOPRIL [Concomitant]
     Indication: HYPERTENSION
  5. PRAVASTATIN [Concomitant]
     Indication: THROMBOSIS PROPHYLAXIS
  6. PROAIR [Concomitant]
     Indication: ASTHMA
     Dosage: AS NEEDED
  7. TRAMADOL [Concomitant]
     Indication: PAIN
     Dosage: AS NEEDED
  8. METOPROLOL [Concomitant]
     Indication: HYPERTENSION
  9. LEVOTHYROXINE [Concomitant]
     Indication: HYPOTHYROIDISM
  10. FLEXERIL [Concomitant]
     Indication: MUSCLE SPASMS
  11. FLEXERIL [Concomitant]
     Indication: TENSION
  12. BETAMETHASONE [Concomitant]
     Indication: PSORIASIS
     Dosage: AS NEEDED

REACTIONS (12)
  - Blood potassium decreased [Recovered/Resolved]
  - Gastrointestinal bacterial infection [Recovered/Resolved]
  - Pyrexia [Recovered/Resolved]
  - Mobility decreased [Recovered/Resolved]
  - Arthralgia [Recovered/Resolved]
  - Nausea [Recovered/Resolved]
  - Vomiting [Recovered/Resolved]
  - Nausea [Recovered/Resolved]
  - Vomiting [Recovered/Resolved]
  - Abdominal pain [Recovered/Resolved]
  - Umbilical hernia, obstructive [Recovered/Resolved]
  - Appendicectomy [Recovered/Resolved]
